FAERS Safety Report 12539637 (Version 1)
Quarter: 2016Q3

REPORT INFORMATION
  Report Type: Spontaneous
  Country: US (occurrence: None)
  Receive Date: 20160707
  Receipt Date: 20160707
  Transmission Date: 20161109
  Serious: No
  Sender: FDA-Public Use
  Company Number: None

PATIENT
  Age: 54 Year
  Sex: Male
  Weight: 90.72 kg

DRUGS (1)
  1. STELARA [Suspect]
     Active Substance: USTEKINUMAB
     Indication: PSORIATIC ARTHROPATHY
     Dosage: 0.5 ML EVERY 12 WEEKS SUBCUTANEOUS
     Route: 058
     Dates: start: 20151123, end: 20160705

REACTIONS (1)
  - Urticaria [None]

NARRATIVE: CASE EVENT DATE: 20160405
